FAERS Safety Report 8576717-4 (Version None)
Quarter: 2012Q3

REPORT INFORMATION
  Report Type: 
  Country: None (occurrence: None)
  Receive Date: 20120807
  Receipt Date: 20120727
  Transmission Date: 20120928
  Serious: Yes (Life-Threatening, Hospitalization)
  Sender: FDA-Public Use
  Company Number: FR-GLAXOSMITHKLINE-B0818572A

PATIENT
  Age: 77 Year
  Sex: Female
  Weight: 83.7 kg

DRUGS (3)
  1. PREVISCAN [Suspect]
     Indication: PULMONARY EMBOLISM
     Dosage: 20MG PER DAY
     Route: 048
     Dates: start: 20120523, end: 20120531
  2. ASPIRIN [Concomitant]
     Indication: MYOCARDIAL ISCHAEMIA
     Route: 048
  3. ARIXTRA [Suspect]
     Indication: PULMONARY EMBOLISM
     Dosage: 7.5MG PER DAY
     Route: 058
     Dates: start: 20120519, end: 20120523

REACTIONS (5)
  - PELVIC HAEMATOMA [None]
  - ABDOMINAL PAIN LOWER [None]
  - PYELOCALIECTASIS [None]
  - ANAEMIA [None]
  - HYDRONEPHROSIS [None]
